FAERS Safety Report 7895106-9 (Version None)
Quarter: 2011Q4

REPORT INFORMATION
  Report Type: 
  Country: None (occurrence: None)
  Receive Date: 20111102
  Receipt Date: 20111017
  Transmission Date: 20120403
  Serious: Yes (Hospitalization, Other)
  Sender: FDA-Public Use
  Company Number: 2011P1009501

PATIENT
  Age: 48 Year
  Sex: Female

DRUGS (13)
  1. LAMOTRIGINE [Suspect]
     Indication: AFFECTIVE DISORDER
     Dosage: 100 MG; QD; PO
     Route: 048
     Dates: start: 20110826, end: 20110830
  2. LAMOTRIGINE [Suspect]
     Indication: DEPRESSION
     Dosage: 100 MG; QD; PO
     Route: 048
     Dates: start: 20110826, end: 20110830
  3. RAMIPRIL [Concomitant]
  4. COUMADIN [Concomitant]
  5. SENNA PLUS [Concomitant]
  6. COLACE [Concomitant]
  7. CELEXA [Concomitant]
  8. LAMOTRIGINE [Suspect]
     Indication: AFFECTIVE DISORDER
     Dosage: 50 MG;     100 MG; QD;
     Dates: end: 20110822
  9. LAMOTRIGINE [Suspect]
     Indication: DEPRESSION
     Dosage: 50 MG;     100 MG; QD;
     Dates: end: 20110822
  10. LAMOTRIGINE [Suspect]
     Indication: AFFECTIVE DISORDER
     Dosage: 50 MG;     100 MG; QD;
     Dates: start: 20110823, end: 20110825
  11. LAMOTRIGINE [Suspect]
     Indication: DEPRESSION
     Dosage: 50 MG;     100 MG; QD;
     Dates: start: 20110823, end: 20110825
  12. SYNTHROID [Concomitant]
  13. COREG [Concomitant]

REACTIONS (4)
  - NERVE INJURY [None]
  - STEVENS-JOHNSON SYNDROME [None]
  - DRUG RASH WITH EOSINOPHILIA AND SYSTEMIC SYMPTOMS [None]
  - DRUG ADMINISTRATION ERROR [None]
